FAERS Safety Report 21172663 (Version 2)
Quarter: 2022Q4

REPORT INFORMATION
  Report Type: Report from Study
  Country: AU (occurrence: AU)
  Receive Date: 20220804
  Receipt Date: 20221115
  Transmission Date: 20230113
  Serious: Yes (Hospitalization)
  Sender: FDA-Public Use
  Company Number: AU-PFIZER INC-PV202200035356

PATIENT
  Age: 25 Year
  Sex: Male
  Weight: 73 kg

DRUGS (29)
  1. PALBOCICLIB [Suspect]
     Active Substance: PALBOCICLIB
     Indication: Lung neoplasm malignant
     Dosage: 75 MG, 224 DAYS - CYCLE 6
     Route: 048
     Dates: start: 20211216, end: 20220728
  2. AVELUMAB [Suspect]
     Active Substance: AVELUMAB
     Indication: Lung neoplasm malignant
     Dosage: 685 MG, 184 DAYS - CYCLE 6
     Route: 042
     Dates: start: 20220125, end: 20220728
  3. LEVETIRACETAM [Concomitant]
     Active Substance: LEVETIRACETAM
     Indication: Chronic disease
     Dosage: 1000 MG, 1X/DAY
     Route: 048
     Dates: start: 20210413
  4. OXYCODONE [Concomitant]
     Active Substance: OXYCODONE
     Indication: Drug therapy
     Dosage: 5 MG, AS NEEDED
     Route: 048
     Dates: start: 20210601
  5. OXYCODONE [Concomitant]
     Active Substance: OXYCODONE
     Dosage: 2.5 MG, 2X/DAY
     Route: 048
     Dates: start: 20220601, end: 20220701
  6. OXYCODONE [Concomitant]
     Active Substance: OXYCODONE
     Dosage: 10 MG, 2X/DAY
     Route: 048
     Dates: start: 20220701, end: 20220811
  7. ACETAMINOPHEN [Concomitant]
     Active Substance: ACETAMINOPHEN
     Indication: Drug therapy
     Dosage: 500 MG, 2X/DAY
     Route: 048
     Dates: start: 20210601
  8. METOCLOPRAMIDE [Concomitant]
     Active Substance: METOCLOPRAMIDE
     Indication: Drug therapy
     Dosage: 10 MG, 2X/DAY
     Route: 048
     Dates: start: 20210601
  9. POLYETHYLENE GLYCOL 3350\POTASSIUM CHLORIDE\SODIUM BICARBONATE\SODIUM [Concomitant]
     Active Substance: POLYETHYLENE GLYCOL 3350\POTASSIUM CHLORIDE\SODIUM BICARBONATE\SODIUM CHLORIDE
     Indication: Drug therapy
     Dosage: 1 SACHET,  2X/DAY
     Route: 048
     Dates: start: 20220601
  10. DOCUSATE [Concomitant]
     Active Substance: DOCUSATE
     Indication: Drug therapy
     Dosage: 100 MG, 1X/DAY
     Route: 048
     Dates: start: 20220601
  11. SENNOSIDE B [Concomitant]
     Active Substance: SENNOSIDE B
     Indication: Drug therapy
     Dosage: 16 MG, 1X/DAY
     Route: 048
     Dates: start: 20220601
  12. OXYCODONE HYDROCHLORIDE [Concomitant]
     Active Substance: OXYCODONE HYDROCHLORIDE
     Indication: Drug therapy
     Dosage: 10 MG, 1X/DAY
     Route: 048
     Dates: start: 20220701
  13. ONDANSETRON [Concomitant]
     Active Substance: ONDANSETRON
     Indication: Prophylaxis
     Dosage: 8 MG, AS NEEDED
     Route: 060
     Dates: start: 20220714
  14. PANTOPRAZOLE [Concomitant]
     Active Substance: PANTOPRAZOLE
     Indication: Drug therapy
     Dosage: 40 MG, 1X/DAY
     Route: 048
     Dates: start: 20220714
  15. BUPRENORPHINE [Concomitant]
     Active Substance: BUPRENORPHINE
     Indication: Drug therapy
     Dosage: 400 UG, STAT
     Route: 060
     Dates: start: 20220727, end: 20220727
  16. NALOXONE [Concomitant]
     Active Substance: NALOXONE
     Indication: Drug therapy
     Dosage: 1.25 MG, 2X/DAY
     Route: 048
     Dates: start: 20220601, end: 20220701
  17. NALOXONE [Concomitant]
     Active Substance: NALOXONE
     Dosage: 5 MG, 2X/DAY
     Route: 048
     Dates: start: 20220701, end: 20220811
  18. HALOPERIDOL [Concomitant]
     Active Substance: HALOPERIDOL
     Indication: Drug therapy
     Dosage: 0.5 MG, AS NEEDED
     Route: 048
     Dates: start: 20220811
  19. HYDROMORPHONE [Concomitant]
     Active Substance: HYDROMORPHONE
     Indication: Drug therapy
     Dosage: 8 MG, 1X/DAY
     Route: 048
     Dates: start: 20220811, end: 20220825
  20. HYDROMORPHONE [Concomitant]
     Active Substance: HYDROMORPHONE
     Dosage: 20 MG, 1X/DAY
     Route: 048
     Dates: start: 20220826
  21. HYDROMORPHONE [Concomitant]
     Active Substance: HYDROMORPHONE
     Dosage: 32 MG, 1X/DAY
     Route: 048
     Dates: start: 20221014
  22. HYDROMORPHONE [Concomitant]
     Active Substance: HYDROMORPHONE
     Indication: Drug therapy
     Dosage: 2 MG, AS NEEDED
     Route: 048
     Dates: start: 20220811, end: 20220825
  23. HYDROMORPHONE [Concomitant]
     Active Substance: HYDROMORPHONE
     Dosage: 4 MG, AS NEEDED
     Route: 048
     Dates: start: 20220826
  24. PREGABALIN [Concomitant]
     Active Substance: PREGABALIN
     Indication: Drug therapy
     Dosage: 25 MG, 2X/DAY
     Route: 048
     Dates: start: 20220813, end: 20220825
  25. PREGABALIN [Concomitant]
     Active Substance: PREGABALIN
     Dosage: 75 MG, DAILY (AM)
     Route: 048
     Dates: start: 20221003
  26. PREGABALIN [Concomitant]
     Active Substance: PREGABALIN
     Dosage: 150 MG, DAILY (NIGHT)
     Route: 048
     Dates: start: 20221003
  27. OLANZAPINE [Concomitant]
     Active Substance: OLANZAPINE
     Indication: Drug therapy
     Dosage: 5 MG, 1X/DAY
     Route: 048
     Dates: start: 20221004
  28. CORTISONE ACETATE [Concomitant]
     Active Substance: CORTISONE ACETATE
     Indication: Drug therapy
     Dosage: 25 MG, AM
     Route: 048
     Dates: start: 20221006
  29. CORTISONE ACETATE [Concomitant]
     Active Substance: CORTISONE ACETATE
     Dosage: 12.5 MG, 1200 HRS
     Route: 048
     Dates: start: 20221006

REACTIONS (1)
  - Abdominal pain [Recovered/Resolved]

NARRATIVE: CASE EVENT DATE: 20220727
